FAERS Safety Report 14361849 (Version 1)
Quarter: 2018Q1

REPORT INFORMATION
  Report Type: Report from Study
  Country: None (occurrence: BR)
  Receive Date: 20180108
  Receipt Date: 20180108
  Transmission Date: 20180509
  Serious: Yes (Hospitalization)
  Sender: FDA-Public Use
  Company Number: BR-ABBVIE-18K-020-2213731-00

PATIENT
  Age: 56 Year
  Sex: Female
  Weight: 46 kg

DRUGS (1)
  1. HUMIRA [Suspect]
     Active Substance: ADALIMUMAB
     Indication: RHEUMATOID ARTHRITIS
     Route: 058
     Dates: start: 20171218

REACTIONS (5)
  - Pain [Unknown]
  - Dyspepsia [Recovering/Resolving]
  - Musculoskeletal pain [Recovering/Resolving]
  - Vomiting [Recovering/Resolving]
  - Headache [Recovering/Resolving]

NARRATIVE: CASE EVENT DATE: 201712
